FAERS Safety Report 13518293 (Version 1)
Quarter: 2017Q2

REPORT INFORMATION
  Report Type: Report from Study
  Country: GB (occurrence: GB)
  Receive Date: 20170505
  Receipt Date: 20170505
  Transmission Date: 20170830
  Serious: Yes (Other)
  Sender: FDA-Public Use
  Company Number: GB-MYLANLABS-2017M1026980

PATIENT

DRUGS (3)
  1. ATAZANAVIR/RITONAVIR [Interacting]
     Active Substance: ATAZANAVIR\RITONAVIR
     Indication: HIV INFECTION
     Route: 065
  2. TRIAMCINOLONE [Suspect]
     Active Substance: TRIAMCINOLONE
     Indication: HIV INFECTION
     Dosage: 40MG X 4
     Route: 050
  3. KIVEXA [Concomitant]
     Active Substance: ABACAVIR SULFATE\LAMIVUDINE
     Indication: HIV INFECTION
     Route: 065

REACTIONS (2)
  - Cushing^s syndrome [Recovering/Resolving]
  - Drug interaction [Recovering/Resolving]
